FAERS Safety Report 7268747-X (Version None)
Quarter: 2011Q1

REPORT INFORMATION
  Report Type: 
  Country: None (occurrence: None)
  Receive Date: 20110201
  Receipt Date: 20110128
  Transmission Date: 20110831
  Serious: Yes (Other)
  Sender: FDA-Public Use
  Company Number: US-PFIZER INC-2011020872

PATIENT
  Sex: Female
  Weight: 139 kg

DRUGS (4)
  1. LIPITOR [Suspect]
     Indication: BLOOD CHOLESTEROL INCREASED
     Dosage: 20 MG, DAILY
     Route: 048
     Dates: start: 20030101
  2. WARFARIN [Concomitant]
     Indication: THROMBOSIS
     Dosage: UNK
  3. FUROSEMIDE [Concomitant]
     Indication: OEDEMA
     Dosage: UNK
  4. POTASSIUM CHLORIDE [Concomitant]
     Dosage: UNK

REACTIONS (1)
  - ESSENTIAL TREMOR [None]
